FAERS Safety Report 5473826-3 (Version None)
Quarter: 2007Q4

REPORT INFORMATION
  Report Type: 
  Country: None (occurrence: None)
  Receive Date: 20071001
  Receipt Date: 20070917
  Transmission Date: 20080405
  Serious: Yes (Hospitalization, Other)
  Sender: FDA-Public Use
  Company Number: DE-PURDUE-DEU_2007_0003299

PATIENT
  Age: 54 Year
  Sex: Male
  Weight: 114 kg

DRUGS (9)
  1. OXY/NALOX CR TABS VS OXY CR TABS [Suspect]
     Indication: BACK PAIN
     Dosage: 60 MG, DAILY
     Route: 048
     Dates: start: 20070207, end: 20070502
  2. INSULIN [Concomitant]
  3. FENOFIBRATE [Concomitant]
  4. LISINOPRIL [Concomitant]
  5. NEXIUM [Concomitant]
  6. CARBAMAZEPINE [Concomitant]
  7. GABAPENTIN [Concomitant]
  8. AMITRIPTYLINE HCL [Concomitant]
  9. BISACODYL [Concomitant]

REACTIONS (1)
  - CHOLELITHIASIS [None]
